FAERS Safety Report 10203042 (Version 1)
Quarter: 2014Q2

REPORT INFORMATION
  Report Type: Spontaneous
  Country: US (occurrence: US)
  Receive Date: 20140529
  Receipt Date: 20140529
  Transmission Date: 20141212
  Serious: Yes (Hospitalization)
  Sender: FDA-Public Use
  Company Number: US-MYLANLABS-2014S1012015

PATIENT
  Age: 13 Year
  Sex: Male
  Weight: 35.5 kg

DRUGS (8)
  1. CLONIDINE HYDROCHLORIDE TABLETS, USP [Suspect]
     Indication: ABNORMAL BEHAVIOUR
     Route: 048
     Dates: start: 20140514, end: 20140516
  2. CLONIDINE HYDROCHLORIDE TABLETS, USP [Suspect]
     Indication: OFF LABEL USE
     Route: 048
     Dates: start: 20140514, end: 20140516
  3. CLONIDINE HYDROCHLORIDE TABLETS, USP [Suspect]
     Indication: ABNORMAL BEHAVIOUR
     Route: 048
     Dates: start: 20140517, end: 20140518
  4. CLONIDINE HYDROCHLORIDE TABLETS, USP [Suspect]
     Indication: OFF LABEL USE
     Route: 048
     Dates: start: 20140517, end: 20140518
  5. CLONIDINE HYDROCHLORIDE TABLETS, USP [Suspect]
     Indication: ABNORMAL BEHAVIOUR
     Route: 048
     Dates: start: 20140519
  6. CLONIDINE HYDROCHLORIDE TABLETS, USP [Suspect]
     Indication: OFF LABEL USE
     Route: 048
     Dates: start: 20140519
  7. SULFASALAZINE [Concomitant]
  8. MERCAPTOPURINE [Concomitant]

REACTIONS (2)
  - Bradycardia [Not Recovered/Not Resolved]
  - Incorrect dose administered [Recovered/Resolved]
